FAERS Safety Report 5039501-4 (Version None)
Quarter: 2006Q2

REPORT INFORMATION
  Report Type: 
  Country: None (occurrence: None)
  Receive Date: 20060601
  Receipt Date: 20060117
  Transmission Date: 20061013
  Serious: No
  Sender: FDA-Public Use
  Company Number: 2006PV007216

PATIENT
  Age: 32 Year
  Sex: Female
  Weight: 77.5651 kg

DRUGS (3)
  1. BYETTA [Suspect]
     Indication: METABOLIC DISORDER
     Dosage: SEE IMAGE
     Route: 058
     Dates: start: 20051001, end: 20051101
  2. BYETTA [Suspect]
     Indication: METABOLIC DISORDER
     Dosage: SEE IMAGE
     Route: 058
     Dates: start: 20051101
  3. GLUCOPHAGE [Concomitant]

REACTIONS (4)
  - INJECTION SITE ERYTHEMA [None]
  - INJECTION SITE PRURITUS [None]
  - INJECTION SITE RASH [None]
  - WEIGHT DECREASED [None]
